FAERS Safety Report 5420932-5 (Version None)
Quarter: 2007Q3

REPORT INFORMATION
  Report Type: 
  Country: None (occurrence: None)
  Receive Date: 20070817
  Receipt Date: 20070817
  Transmission Date: 20080115
  Serious: Yes (Hospitalization)
  Sender: FDA-Public Use
  Company Number: None

PATIENT
  Age: 48 Year
  Sex: Female
  Weight: 77.1115 kg

DRUGS (2)
  1. OFF WITH PICARIDIN JOHNSON AND JOHNSON [Suspect]
     Dates: start: 20070413, end: 20070804
  2. BANANA BOAT SPORT SUNSCREEN AERO [Suspect]
     Dates: start: 20070804, end: 20070804

REACTIONS (4)
  - APNOEA [None]
  - EYE ROLLING [None]
  - GRAND MAL CONVULSION [None]
  - POSTICTAL STATE [None]
